FAERS Safety Report 23618269 (Version 1)
Quarter: 2024Q1

REPORT INFORMATION
  Report Type: Spontaneous
  Country: US (occurrence: US)
  Receive Date: 20240311
  Receipt Date: 20240311
  Transmission Date: 20240410
  Serious: No
  Sender: FDA-Public Use
  Company Number: US-DAIICHI SANKYO, INC.-DSU-2024-110821AA

PATIENT
  Sex: Female

DRUGS (1)
  1. ENHERTU [Suspect]
     Active Substance: FAM-TRASTUZUMAB DERUXTECAN-NXKI
     Indication: Lung neoplasm malignant
     Dosage: UNK
     Route: 065
     Dates: start: 20231117, end: 20240308

REACTIONS (1)
  - Respiratory symptom [Unknown]

NARRATIVE: CASE EVENT DATE: 20240101
